FAERS Safety Report 21826013 (Version 1)
Quarter: 2023Q1

REPORT INFORMATION
  Report Type: Report from Study
  Country: US (occurrence: US)
  Receive Date: 20230106
  Receipt Date: 20230106
  Transmission Date: 20230417
  Serious: Yes (Other)
  Sender: FDA-Public Use
  Company Number: US-BEH-2022153043

PATIENT
  Age: 62 Year
  Sex: Female
  Weight: 86.168 kg

DRUGS (1)
  1. HIZENTRA [Suspect]
     Active Substance: HUMAN IMMUNOGLOBULIN G
     Indication: Chronic inflammatory demyelinating polyradiculoneuropathy
     Dosage: 35 GRAM, QW
     Route: 058
     Dates: start: 20221016, end: 202211

REACTIONS (5)
  - Fatigue [Not Recovered/Not Resolved]
  - Urinary retention [Unknown]
  - Injection site bruising [Unknown]
  - Infusion site extravasation [Unknown]
  - Infusion site nodule [Unknown]

NARRATIVE: CASE EVENT DATE: 20220101
